FAERS Safety Report 15753286 (Version 1)
Quarter: 2018Q4

REPORT INFORMATION
  Report Type: Spontaneous
  Country: BG (occurrence: BG)
  Receive Date: 20181222
  Receipt Date: 20181222
  Transmission Date: 20190205
  Serious: Yes (Death, Hospitalization, Other)
  Sender: FDA-Public Use
  Company Number: BG-BAXTER-2018BAX030660

PATIENT
  Sex: Male

DRUGS (10)
  1. KYPROLIS [Suspect]
     Active Substance: CARFILZOMIB
     Dosage: ON DAY 1 AND 2
     Route: 065
     Dates: start: 2018
  2. ZOFRAN [Concomitant]
     Active Substance: ONDANSETRON HYDROCHLORIDE
     Indication: PRODUCT USED FOR UNKNOWN INDICATION
     Route: 065
  3. BORTEZOMIB. [Suspect]
     Active Substance: BORTEZOMIB
     Indication: PLASMA CELL MYELOMA
     Dosage: SUPPORTING THERAPY WITH BORTEZOMIB FOR TWO YEARS WITH SIX COURSES
     Route: 065
  4. DEXAMETHASONE. [Suspect]
     Active Substance: DEXAMETHASONE
     Dosage: NEWLINE OF CYCLICAL CHEMOTHERAPY
     Route: 065
     Dates: start: 2018
  5. DEXAMETHASONE. [Suspect]
     Active Substance: DEXAMETHASONE
     Indication: PLASMA CELL MYELOMA
     Dosage: RECEIVED SIX COURSES
     Route: 065
  6. BUPRENORPHINE. [Concomitant]
     Active Substance: BUPRENORPHINE
     Indication: PRODUCT USED FOR UNKNOWN INDICATION
     Route: 065
  7. DEXAMETHASONE. [Suspect]
     Active Substance: DEXAMETHASONE
     Dosage: ON DAY 1
     Route: 065
     Dates: start: 2018
  8. ENDOXAN 1 G POWDER FOR SOLUTION FOR INJECTION [Suspect]
     Active Substance: CYCLOPHOSPHAMIDE
     Dosage: NEWLINE OF CYCLICAL CHEMOTHERAPY
     Route: 065
     Dates: start: 2018
  9. KYPROLIS [Suspect]
     Active Substance: CARFILZOMIB
     Indication: PLASMA CELL MYELOMA
     Dosage: NEWLINE OF CYCLICAL CHEMOTHERAPY
     Route: 065
     Dates: start: 2018
  10. ENDOXAN 1 G POWDER FOR SOLUTION FOR INJECTION [Suspect]
     Active Substance: CYCLOPHOSPHAMIDE
     Indication: PLASMA CELL MYELOMA
     Dosage: RECEIVED SIX COURSES
     Route: 065

REACTIONS (7)
  - Off label use [Unknown]
  - Bone lesion [Unknown]
  - Disease progression [Unknown]
  - Pancytopenia [Recovering/Resolving]
  - Pneumonia [Recovering/Resolving]
  - Plasma cell myeloma [Unknown]
  - Death [Fatal]

NARRATIVE: CASE EVENT DATE: 2018
